FAERS Safety Report 5424705-9 (Version None)
Quarter: 2007Q3

REPORT INFORMATION
  Report Type: 
  Country: None (occurrence: None)
  Receive Date: 20070822
  Receipt Date: 20070822
  Transmission Date: 20080115
  Serious: Yes (Hospitalization)
  Sender: FDA-Public Use
  Company Number: None

PATIENT
  Age: 77 Year
  Sex: Male
  Weight: 73.9 kg

DRUGS (3)
  1. COLCHICINE [Suspect]
     Indication: GOUT
     Dosage: 0.6MG EVERY DAY PO
     Route: 048
     Dates: start: 20070604, end: 20070723
  2. ACETAMINOPHEN AND OXYCODONE HCL [Concomitant]
  3. LISINOPRIL [Concomitant]

REACTIONS (2)
  - RENAL MASS [None]
  - RHABDOMYOLYSIS [None]
